FAERS Safety Report 9692636 (Version 1)
Quarter: 2013Q4

REPORT INFORMATION
  Report Type: Report from Study
  Country: NZ (occurrence: NZ)
  Receive Date: 20131118
  Receipt Date: 20131118
  Transmission Date: 20140711
  Serious: Yes (Other)
  Sender: FDA-Public Use
  Company Number: PHHY2013NZ129774

PATIENT
  Age: 73 Year
  Sex: Male

DRUGS (5)
  1. TASIGNA [Suspect]
     Indication: CHRONIC MYELOID LEUKAEMIA
     Dosage: 400 MG, BID
     Route: 048
     Dates: start: 20090210, end: 20090223
  2. TASIGNA [Suspect]
     Dosage: 400 MG, QD
     Route: 048
  3. ASPIRIN [Concomitant]
     Indication: ANTIPLATELET THERAPY
     Dosage: 100 MG, UNK
     Route: 048
  4. CILAZAPRIL [Concomitant]
     Indication: HYPERTENSION
     Dosage: UNK UKN, UNK
     Route: 048
  5. THYROXINE [Concomitant]
     Indication: HYPOTHYROIDISM
     Dosage: 100 UG WITH 300 UG EVERY THIRD DAY
     Route: 048

REACTIONS (3)
  - Fluid retention [Recovered/Resolved]
  - Joint swelling [Unknown]
  - Dyspnoea [Unknown]
